FAERS Safety Report 15453044 (Version 2)
Quarter: 2018Q4

REPORT INFORMATION
  Report Type: Spontaneous
  Country: US (occurrence: US)
  Receive Date: 20181001
  Receipt Date: 20181022
  Transmission Date: 20190204
  Serious: Yes (Other)
  Sender: FDA-Public Use
  Company Number: US-TASMAN PHARMA, INC.-2018TSM00121

PATIENT
  Age: 40 Year
  Sex: Male
  Weight: 152.6 kg

DRUGS (1)
  1. CLOZAPINE (TEVA) [Suspect]
     Active Substance: CLOZAPINE
     Dosage: UNK
     Dates: start: 20180815

REACTIONS (1)
  - Neutropenia [Unknown]

NARRATIVE: CASE EVENT DATE: 20180916
